FAERS Safety Report 4446600-4 (Version None)
Quarter: 2004Q3

REPORT INFORMATION
  Report Type: 
  Country: None (occurrence: None)
  Receive Date: 20040908
  Receipt Date: 20040826
  Transmission Date: 20050211
  Serious: Yes (Hospitalization)
  Sender: FDA-Public Use
  Company Number: 2004230940US

PATIENT
  Age: 23 Year
  Sex: Female
  Weight: 105 kg

DRUGS (9)
  1. TRIPTORELIN PAMOATE (TRIPTORELIN PAMOATE)POWDER, STERILE [Suspect]
     Indication: BREAST CANCER
     Dosage: 3.75 MG
     Dates: end: 20040629
  2. DOXORUBICIN HYDROCHLORIDE [Suspect]
     Indication: BREAST CANCER
  3. CYTOXAN [Suspect]
     Indication: BREAST CANCER
  4. ANZEMET(DOLASETRON MESILATE) [Concomitant]
  5. NEULASTA [Concomitant]
  6. DECADRON [Concomitant]
  7. MULTIVITAMIN [Concomitant]
  8. TYLENOL [Concomitant]
  9. VICODIN [Concomitant]

REACTIONS (11)
  - BACK PAIN [None]
  - CHEST DISCOMFORT [None]
  - CHEST PAIN [None]
  - COMPUTERISED TOMOGRAM ABNORMAL [None]
  - HAEMORRHOIDS [None]
  - PAIN [None]
  - PAINFUL DEFAECATION [None]
  - PULMONARY EMBOLISM [None]
  - PYELONEPHRITIS [None]
  - THROMBOSIS [None]
  - URINARY TRACT INFECTION [None]
